FAERS Safety Report 4588168-8 (Version None)
Quarter: 2005Q1

REPORT INFORMATION
  Report Type: 
  Country: None (occurrence: None)
  Receive Date: 20050221
  Receipt Date: 20050202
  Transmission Date: 20050727
  Serious: Yes (Other)
  Sender: FDA-Public Use
  Company Number: CA-GLAXOSMITHKLINE-A0543804A

PATIENT
  Age: 56 Year
  Sex: Male

DRUGS (2)
  1. FLOVENT [Suspect]
     Dosage: 1PUFF TWICE PER DAY
     Route: 055
  2. FLOVENT [Suspect]
     Route: 055

REACTIONS (7)
  - CHILLS [None]
  - DRUG INEFFECTIVE [None]
  - DYSPHAGIA [None]
  - PHARMACEUTICAL PRODUCT COMPLAINT [None]
  - PNEUMONIA [None]
  - PULMONARY CONGESTION [None]
  - SPEECH DISORDER [None]
